FAERS Safety Report 6269936-3 (Version None)
Quarter: 2009Q3

REPORT INFORMATION
  Report Type: 
  Country: None (occurrence: None)
  Receive Date: 20090716
  Receipt Date: 20090515
  Transmission Date: 20100115
  Serious: Yes (Other)
  Sender: FDA-Public Use
  Company Number: US-BAYER-200921462NA

PATIENT
  Age: 61 Year
  Sex: Male

DRUGS (16)
  1. MAGNEVIST [Suspect]
     Indication: NUCLEAR MAGNETIC RESONANCE IMAGING
     Dosage: ^15 ML - MAGNEVIST 20 ML^
     Route: 042
     Dates: start: 20060613, end: 20060613
  2. OMNISCAN [Suspect]
     Indication: ANGIOGRAM
     Dosage: TOTAL DAILY DOSE: 40 ML
     Route: 042
     Dates: start: 20060123, end: 20060123
  3. METOPROLOL TARTRATE [Concomitant]
     Route: 048
  4. ALLOPURINOL [Concomitant]
  5. DARBEPOETIN ALFA [Concomitant]
     Dosage: 60 ?G/ 0.3ML Q WEEK
     Route: 058
  6. ALBUTEROL [Concomitant]
  7. FORMOTEROL FUMARATE [Concomitant]
     Dosage: INHALATION
  8. NEPHRO-VITE [Concomitant]
  9. LISINOPRIL [Concomitant]
     Route: 048
  10. COUMADIN [Concomitant]
     Route: 048
  11. DILTIAZEM [Concomitant]
     Route: 048
  12. SYNTHROID [Concomitant]
  13. VITAMIN D [Concomitant]
  14. CALCIFEROL [Concomitant]
  15. NITROGLYCERIN [Concomitant]
  16. ARANESP [Concomitant]

REACTIONS (21)
  - DRY SKIN [None]
  - ERYTHEMA [None]
  - GAIT DISTURBANCE [None]
  - JOINT CONTRACTURE [None]
  - JOINT RANGE OF MOTION DECREASED [None]
  - MUSCLE ATROPHY [None]
  - MUSCLE FIBROSIS [None]
  - MUSCLE TIGHTNESS [None]
  - MUSCULAR WEAKNESS [None]
  - MUSCULOSKELETAL PAIN [None]
  - MUSCULOSKELETAL STIFFNESS [None]
  - NEPHROGENIC SYSTEMIC FIBROSIS [None]
  - OEDEMA PERIPHERAL [None]
  - PAIN IN EXTREMITY [None]
  - PULMONARY FIBROSIS [None]
  - SCAB [None]
  - SKIN DISCOLOURATION [None]
  - SKIN HYPERTROPHY [None]
  - SKIN INDURATION [None]
  - SKIN TIGHTNESS [None]
  - WOUND SECRETION [None]
